FAERS Safety Report 5618647-3 (Version None)
Quarter: 2008Q1

REPORT INFORMATION
  Report Type: 
  Country: None (occurrence: None)
  Receive Date: 20080205
  Receipt Date: 20080205
  Transmission Date: 20080703
  Serious: Yes (Death)
  Sender: FDA-Public Use
  Company Number: None

PATIENT
  Age: 65 Year
  Sex: Male
  Weight: 54.4316 kg

DRUGS (1)
  1. HEPARIN [Suspect]

REACTIONS (8)
  - DIARRHOEA [None]
  - DIZZINESS [None]
  - DYSPNOEA [None]
  - HEADACHE [None]
  - NAUSEA [None]
  - ORAL INTAKE REDUCED [None]
  - RENAL FAILURE [None]
  - VOMITING [None]
